FAERS Safety Report 17369254 (Version 1)
Quarter: 2020Q1

REPORT INFORMATION
  Report Type: Spontaneous
  Country: FR (occurrence: FR)
  Receive Date: 20200204
  Receipt Date: 20200204
  Transmission Date: 20200409
  Serious: Yes (Death)
  Sender: FDA-Public Use
  Company Number: FR-TEVA-2020-FR-1180955

PATIENT
  Age: 75 Year
  Sex: Male
  Weight: 70 kg

DRUGS (9)
  1. XENETIX 350 (350 MG D^IODE/ML), SOLUTION INJECTABLE [Suspect]
     Active Substance: IOBITRIDOL
     Indication: COMPUTERISED TOMOGRAM
     Dosage: 115 ML, TOTAL
     Route: 042
     Dates: start: 20191227, end: 20191227
  2. BISOPROLOL (FUMARATE DE) [Concomitant]
     Active Substance: BISOPROLOL FUMARATE
     Indication: HYPERTENSION
     Dosage: 5 MG
     Route: 048
     Dates: end: 20200101
  3. ELIQUIS [Concomitant]
     Active Substance: APIXABAN
     Indication: CARDIAC VALVE PROSTHESIS USER
     Dosage: 2 DOSAGE FORMS
     Route: 048
     Dates: end: 20191231
  4. CLAMOXYL 1 G, POUDRE ET SOLVANT POUR SOLUTION INJECTABLE (I.M.-I.V.) [Concomitant]
     Indication: ENDOCARDITIS
     Dosage: POWDER AND SOLVENT FOR SOLUTION FOR INJECTION, 2 G
     Route: 042
     Dates: start: 201912, end: 20191220
  5. FUROSEMIDE. [Concomitant]
     Active Substance: FUROSEMIDE
     Indication: HYPERTENSION
     Dosage: 160 MG
     Route: 048
     Dates: end: 20191231
  6. SPIRONOLACTONE. [Concomitant]
     Active Substance: SPIRONOLACTONE
     Indication: HYPERTENSION
     Dosage: 25 MG
     Route: 048
     Dates: end: 20191230
  7. ENTRESTO [Concomitant]
     Active Substance: SACUBITRIL\VALSARTAN
     Indication: HYPERTENSION
     Dosage: 2 DOSAGE FORMS
     Route: 048
     Dates: end: 20191230
  8. VANCOMYCINE [Suspect]
     Active Substance: VANCOMYCIN
     Indication: ENDOCARDITIS
     Dosage: UNKNOWN
     Route: 042
     Dates: start: 20191221, end: 20191230
  9. GENTAMICINE [Suspect]
     Active Substance: GENTAMICIN
     Indication: ENDOCARDITIS
     Dosage: 210 MG
     Route: 042
     Dates: start: 201912, end: 20191230

REACTIONS (1)
  - Acute kidney injury [Fatal]

NARRATIVE: CASE EVENT DATE: 20191226
